FAERS Safety Report 9922159 (Version 1)
Quarter: 2014Q1

REPORT INFORMATION
  Report Type: Spontaneous
  Country: US (occurrence: None)
  Receive Date: 20140224
  Receipt Date: 20140224
  Transmission Date: 20141002
  Serious: Yes (Other)
  Sender: FDA-Public Use
  Company Number: None

PATIENT
  Age: 69 Year
  Sex: Male

DRUGS (11)
  1. ZYTIGA 250MG JANSSEN BIOTECH [Suspect]
     Indication: PROSTATE CANCER
     Dosage: 4 TABLETS (1,000MG) ONCE DAILY
     Route: 048
     Dates: start: 20140130
  2. OMEPRAZOLE [Concomitant]
  3. AMLODIPINE BESYLATE [Concomitant]
  4. LOSARTAN [Concomitant]
  5. BALSALAZIDE [Concomitant]
  6. MELOXICAM [Concomitant]
  7. LOSARTAN [Concomitant]
  8. UCERIS [Concomitant]
  9. PREDNISONE [Concomitant]
  10. CLINDAMYCIN [Concomitant]
  11. PREDNISONE [Concomitant]

REACTIONS (4)
  - Fatigue [None]
  - Dyspnoea [None]
  - Chest discomfort [None]
  - Oedema peripheral [None]
